FAERS Safety Report 6191873-3 (Version None)
Quarter: 2009Q2

REPORT INFORMATION
  Report Type: 
  Country: None (occurrence: None)
  Receive Date: 20090515
  Receipt Date: 20090505
  Transmission Date: 20091009
  Serious: Yes (Other)
  Sender: FDA-Public Use
  Company Number: US-AMGEN-QUU343773

PATIENT
  Age: 80 Year
  Sex: Female

DRUGS (4)
  1. NEULASTA [Suspect]
     Indication: CHEMOTHERAPY
     Route: 058
     Dates: start: 20090402
  2. DOCETAXEL [Concomitant]
     Dates: start: 20090401
  3. DOXORUBICIN HYDROCHLORIDE [Concomitant]
     Dates: start: 20090401
  4. CYCLOPHOSPHAMIDE [Concomitant]
     Dates: start: 20090401

REACTIONS (2)
  - DRUG INEFFECTIVE [None]
  - WHITE BLOOD CELL COUNT DECREASED [None]
